FAERS Safety Report 4677527-0 (Version None)
Quarter: 2005Q2

REPORT INFORMATION
  Report Type: 
  Country: None (occurrence: None)
  Receive Date: 20050526
  Receipt Date: 20050526
  Transmission Date: 20051028
  Serious: Yes (Life-Threatening)
  Sender: FDA-Public Use
  Company Number: None

PATIENT
  Age: 45 Year
  Sex: Male
  Weight: 110.25 kg

DRUGS (1)
  1. BENAZEPRIL [Suspect]

REACTIONS (1)
  - ANGIONEUROTIC OEDEMA [None]
